FAERS Safety Report 10547704 (Version 1)
Quarter: 2014Q4

REPORT INFORMATION
  Report Type: Spontaneous
  Country: BR (occurrence: BR)
  Receive Date: 20141028
  Receipt Date: 20141028
  Transmission Date: 20150529
  Serious: Yes (Death, Hospitalization)
  Sender: FDA-Public Use
  Company Number: BR-MACLEODS PHARMACEUTICALS US LTD-MAC2014001440

PATIENT

DRUGS (1)
  1. LOSARTAN POTASSIUM. [Suspect]
     Active Substance: LOSARTAN POTASSIUM
     Indication: HYPERTENSION
     Dosage: 50 MG, QD
     Route: 064

REACTIONS (14)
  - Kidney enlargement [Fatal]
  - Foetal exposure during pregnancy [Unknown]
  - Cerebral haemorrhage neonatal [None]
  - Delayed fontanelle closure [Fatal]
  - Amniotic fluid volume decreased [None]
  - Cerebral ischaemia [None]
  - Cardiac arrest [Fatal]
  - Caesarean section [None]
  - Foetal malformation [Fatal]
  - Pulmonary hypoplasia [Fatal]
  - Placental disorder [None]
  - Respiratory disorder neonatal [None]
  - Pulmonary haemorrhage [None]
  - Oligohydramnios [None]
